FAERS Safety Report 6767747-3 (Version None)
Quarter: 2010Q2

REPORT INFORMATION
  Report Type: 
  Country: None (occurrence: None)
  Receive Date: 20100614
  Receipt Date: 20100610
  Transmission Date: 20101027
  Serious: Yes (Hospitalization)
  Sender: FDA-Public Use
  Company Number: CO-ROCHE-708431

PATIENT
  Sex: Male

DRUGS (1)
  1. AVASTIN [Suspect]
     Indication: COLON CANCER
     Dosage: FORM: INFUSION, LAST INFUSION:APRIL 2010
     Route: 042
     Dates: start: 20100211

REACTIONS (1)
  - INTESTINAL OBSTRUCTION [None]
